FAERS Safety Report 8714972 (Version 3)
Quarter: 2012Q4

REPORT INFORMATION
  Report Type: 
  Country: IL (occurrence: IL)
  Receive Date: 20120809
  Receipt Date: 20121213
  Transmission Date: 20130627
  Serious: Yes (Other)
  Sender: FDA-Public Use
  Company Number: PHHY2012IL068310

PATIENT
  Age: 60 Year
  Sex: Male

DRUGS (6)
  1. GILENYA [Suspect]
     Indication: MULTIPLE SCLEROSIS
     Dosage: 0.5 mg, QD
     Route: 048
     Dates: start: 20120711
  2. CLONAZEPAM [Concomitant]
     Route: 048
  3. GABAPENTIN [Concomitant]
     Route: 048
  4. CANNABIS [Concomitant]
  5. TRAMADOL [Concomitant]
     Route: 048
  6. BACLOFEN [Concomitant]
     Route: 048

REACTIONS (8)
  - Muscle spasticity [Unknown]
  - Muscle spasms [Unknown]
  - Pain in extremity [Unknown]
  - Chills [Recovering/Resolving]
  - Pigmentation disorder [Unknown]
  - Somnolence [Not Recovered/Not Resolved]
  - Pain [Not Recovered/Not Resolved]
  - Muscular weakness [Not Recovered/Not Resolved]
